FAERS Safety Report 5754924-3 (Version None)
Quarter: 2008Q2

REPORT INFORMATION
  Report Type: 
  Country: None (occurrence: None)
  Receive Date: 20080527
  Receipt Date: 20080509
  Transmission Date: 20081010
  Serious: Yes (Disabling)
  Sender: FDA-Public Use
  Company Number: 2008AL004698

PATIENT
  Age: 75 Year
  Sex: Female
  Weight: 64.4108 kg

DRUGS (5)
  1. DIGOXIN [Suspect]
     Indication: CARDIAC FAILURE CONGESTIVE
     Dosage: .125MG DAILY PO
     Route: 048
     Dates: start: 20030101, end: 20070101
  2. SPIRONOLACTONE [Concomitant]
  3. AMLODIPINE [Concomitant]
  4. METOPROLOL TARTRATE [Concomitant]
  5. FUROSEMIDE [Concomitant]

REACTIONS (3)
  - ABASIA [None]
  - DIZZINESS [None]
  - FALL [None]
